FAERS Safety Report 9262720 (Version 1)
Quarter: 2013Q2

REPORT INFORMATION
  Report Type: Spontaneous
  Country: US (occurrence: None)
  Receive Date: 20130426
  Receipt Date: 20130426
  Transmission Date: 20140414
  Serious: Yes (Other)
  Sender: FDA-Public Use
  Company Number: SYM-2013-02867

PATIENT
  Age: 16 Year
  Sex: Female
  Weight: 49.9 kg

DRUGS (3)
  1. SOLODYN [Suspect]
     Indication: ACNE
     Route: 048
     Dates: start: 201204
  2. ZIANA [Suspect]
     Indication: ACNE
     Route: 061
     Dates: start: 201204
  3. LORATADINE [Concomitant]

REACTIONS (17)
  - Nausea [None]
  - Dizziness [None]
  - Headache [None]
  - Musculoskeletal pain [None]
  - Loss of consciousness [None]
  - Fall [None]
  - Head injury [None]
  - Hyperacusis [None]
  - Photophobia [None]
  - Feeling abnormal [None]
  - Concussion [None]
  - Fatigue [None]
  - Lupus-like syndrome [None]
  - Loss of consciousness [None]
  - Muscle twitching [None]
  - Eye movement disorder [None]
  - Presyncope [None]
